FAERS Safety Report 5127512-X (Version None)
Quarter: 2006Q4

REPORT INFORMATION
  Report Type: 
  Country: None (occurrence: None)
  Receive Date: 20061011
  Receipt Date: 20060925
  Transmission Date: 20070319
  Serious: Yes (Death)
  Sender: FDA-Public Use
  Company Number: 2006JP003497

PATIENT
  Sex: Female

DRUGS (7)
  1. PROGRAF [Suspect]
     Indication: LIVER TRANSPLANT
  2. STEROID [Concomitant]
  3. CYCLOPHOSPHAMIDE [Concomitant]
  4. MYCOPHENOLATE MOFETIL [Concomitant]
  5. RITUXAN [Concomitant]
  6. PROSTAGLANDINS [Concomitant]
  7. METHYLPREDNISOLONE 4MG TAB [Concomitant]

REACTIONS (2)
  - BILIARY TRACT DISORDER [None]
  - INFECTION [None]
